FAERS Safety Report 17742200 (Version 2)
Quarter: 2020Q2

REPORT INFORMATION
  Report Type: Report from Study
  Country: None (occurrence: CA)
  Receive Date: 20200505
  Receipt Date: 20200620
  Transmission Date: 20200714
  Serious: Yes (Other)
  Sender: FDA-Public Use
  Company Number: CA-ABBVIE-20K-028-3387647-00

PATIENT
  Sex: Male

DRUGS (1)
  1. HUMIRA [Suspect]
     Active Substance: ADALIMUMAB
     Indication: HIDRADENITIS
     Route: 058
     Dates: start: 20191118

REACTIONS (4)
  - Cyst [Not Recovered/Not Resolved]
  - Local reaction [Unknown]
  - Panic attack [Unknown]
  - Stress [Unknown]

NARRATIVE: CASE EVENT DATE: 2020
